FAERS Safety Report 14868757 (Version 1)
Quarter: 2018Q2

REPORT INFORMATION
  Report Type: Spontaneous
  Country: GT (occurrence: GT)
  Receive Date: 20180509
  Receipt Date: 20180509
  Transmission Date: 20180711
  Serious: Yes (Other)
  Sender: FDA-Public Use
  Company Number: GT-MERCK KGAA-2047461

PATIENT
  Sex: Female

DRUGS (1)
  1. NOVOTHYROX [Suspect]
     Active Substance: LEVOTHYROXINE SODIUM
     Indication: PRODUCT USED FOR UNKNOWN INDICATION

REACTIONS (14)
  - Decreased appetite [None]
  - Aphasia [Recovering/Resolving]
  - General physical health deterioration [None]
  - Disorientation [Not Recovered/Not Resolved]
  - Peripheral swelling [None]
  - Malaise [Recovering/Resolving]
  - Ill-defined disorder [Recovering/Resolving]
  - Depression suicidal [Recovering/Resolving]
  - Fluid retention [None]
  - Thyroid hormones increased [Not Recovered/Not Resolved]
  - Weight increased [None]
  - Amnesia [Recovering/Resolving]
  - Gait disturbance [Recovering/Resolving]
  - Swelling face [None]
